FAERS Safety Report 8086643-5 (Version None)
Quarter: 2012Q1

REPORT INFORMATION
  Report Type: 
  Country: None (occurrence: None)
  Receive Date: 20120128
  Receipt Date: 20110523
  Transmission Date: 20120608
  Serious: No
  Sender: FDA-Public Use
  Company Number: US-ABBOTT-11P-163-0726459-00

PATIENT
  Sex: Female
  Weight: 79.904 kg

DRUGS (4)
  1. VITAMIN D [Concomitant]
     Indication: PRODUCT USED FOR UNKNOWN INDICATION
  2. HUMIRA [Suspect]
     Indication: PSORIATIC ARTHROPATHY
     Dates: start: 20080201
  3. FISH OIL [Concomitant]
     Indication: PRODUCT USED FOR UNKNOWN INDICATION
  4. METHYLDOPA [Concomitant]
     Indication: HYPERTENSION

REACTIONS (4)
  - PYREXIA [None]
  - NASOPHARYNGITIS [None]
  - APHONIA [None]
  - SINUSITIS [None]
